FAERS Safety Report 20140688 (Version 1)
Quarter: 2021Q4

REPORT INFORMATION
  Report Type: Spontaneous
  Country: BR (occurrence: BR)
  Receive Date: 20211202
  Receipt Date: 20211202
  Transmission Date: 20220303
  Serious: Yes (Other)
  Sender: FDA-Public Use
  Company Number: BR-NOVARTISPH-NVSC2019BR025134

PATIENT
  Sex: Female
  Weight: 85 kg

DRUGS (2)
  1. TIMOLOL\TRAVOPROST [Suspect]
     Active Substance: TIMOLOL\TRAVOPROST
     Indication: Glaucoma
     Dosage: 1 GTT, QD
     Route: 065
  2. LAGRIFILM [Concomitant]
     Indication: Eye disorder
     Dosage: 1 GTT (WHILE)
     Route: 065

REACTIONS (4)
  - Blindness [Unknown]
  - Bladder disorder [Unknown]
  - Skin disorder [Unknown]
  - Product packaging issue [Unknown]
